FAERS Safety Report 9773553 (Version 2)
Quarter: 2013Q4

REPORT INFORMATION
  Report Type: Spontaneous
  Country: DE (occurrence: DE)
  Receive Date: 20131219
  Receipt Date: 20131219
  Transmission Date: 20140711
  Serious: Yes (Hospitalization)
  Sender: FDA-Public Use
  Company Number: DE-LUNDBECK-DKLU1095414

PATIENT
  Age: 13 Year
  Sex: Male

DRUGS (3)
  1. ONFI [Suspect]
     Indication: PARTIAL SEIZURES
     Dates: start: 201307
  2. ONFI [Suspect]
     Route: 048
     Dates: start: 20130713
  3. OXCARBAZEPINE [Concomitant]
     Indication: PRODUCT USED FOR UNKNOWN INDICATION

REACTIONS (1)
  - Drug intolerance [Not Recovered/Not Resolved]
